FAERS Safety Report 21403193 (Version 1)
Quarter: 2022Q4

REPORT INFORMATION
  Report Type: Report from Study
  Country: US (occurrence: US)
  Receive Date: 20221003
  Receipt Date: 20221003
  Transmission Date: 20230112
  Serious: Yes (Hospitalization, Other)
  Sender: FDA-Public Use
  Company Number: US-EXELIXIS-CABO-22056395

PATIENT
  Sex: Female

DRUGS (2)
  1. CABOMETYX [Suspect]
     Active Substance: CABOZANTINIB S-MALATE
     Indication: Adrenal gland cancer
     Dosage: UNK (HIGHER DOSE)
     Route: 048
     Dates: start: 202009
  2. CABOMETYX [Suspect]
     Active Substance: CABOZANTINIB S-MALATE
     Dosage: 20 MG, QD
     Route: 048

REACTIONS (6)
  - Ammonia increased [Recovered/Resolved]
  - Oesophageal varices haemorrhage [Unknown]
  - Confusional state [Recovered/Resolved]
  - Dizziness [Recovered/Resolved]
  - Vena cava thrombosis [Unknown]
  - Off label use [Unknown]
